FAERS Safety Report 11246527 (Version 1)
Quarter: 2015Q3

REPORT INFORMATION
  Report Type: Spontaneous
  Country: US (occurrence: None)
  Receive Date: 20150706
  Receipt Date: 20150706
  Transmission Date: 20151125
  Serious: Yes (Life-Threatening)
  Sender: FDA-Public Use
  Company Number: None

PATIENT
  Age: 50 Year
  Sex: Female
  Weight: 86.18 kg

DRUGS (5)
  1. AVELOX [Suspect]
     Active Substance: MOXIFLOXACIN HYDROCHLORIDE
     Indication: EAR INFECTION
     Dosage: 1 PILL DAILY WITH MEAL
     Route: 048
     Dates: start: 20150630
  2. FLONASE [Concomitant]
     Active Substance: FLUTICASONE PROPIONATE
  3. AVELOX [Suspect]
     Active Substance: MOXIFLOXACIN HYDROCHLORIDE
     Indication: SINUS DISORDER
     Dosage: 1 PILL DAILY WITH MEAL
     Route: 048
     Dates: start: 20150630
  4. AMBIEN XR [Concomitant]
  5. ALLEGRA [Concomitant]
     Active Substance: FEXOFENADINE HYDROCHLORIDE

REACTIONS (6)
  - Rash [None]
  - Fatigue [None]
  - Headache [None]
  - Lip swelling [None]
  - Pruritus [None]
  - Paraesthesia oral [None]

NARRATIVE: CASE EVENT DATE: 20150701
